FAERS Safety Report 14241225 (Version 4)
Quarter: 2019Q3

REPORT INFORMATION
  Report Type: Report from Study
  Country: JP (occurrence: JP)
  Receive Date: 20171130
  Receipt Date: 20190924
  Transmission Date: 20191004
  Serious: Yes (Hospitalization, Other)
  Sender: FDA-Public Use
  Company Number: JP-PFM-2017-07382

PATIENT

DRUGS (8)
  1. PROPRANOLOL HYDROCHLORIDE. [Suspect]
     Active Substance: PROPRANOLOL HYDROCHLORIDE
     Indication: INFANTILE HAEMANGIOMA
     Dosage: 0.5 MG/KG TWICE A DAY
     Route: 048
     Dates: start: 20170809, end: 20170809
  2. PROPRANOLOL HYDROCHLORIDE. [Suspect]
     Active Substance: PROPRANOLOL HYDROCHLORIDE
     Dosage: 1.5 MG/KG DAILY
     Route: 055
     Dates: start: 20170926, end: 20171215
  3. PROPRANOLOL HYDROCHLORIDE. [Suspect]
     Active Substance: PROPRANOLOL HYDROCHLORIDE
     Dosage: 1 MG/KG TWICE A DAY
     Route: 048
     Dates: start: 20170810, end: 20170810
  4. PROPRANOLOL HYDROCHLORIDE. [Suspect]
     Active Substance: PROPRANOLOL HYDROCHLORIDE
     Dosage: 1.5 MG/KG DAILY
     Route: 048
     Dates: start: 20180705, end: 20181017
  5. PROPRANOLOL HYDROCHLORIDE. [Suspect]
     Active Substance: PROPRANOLOL HYDROCHLORIDE
     Dosage: 1.5 MG/KG TWICE A DAY
     Route: 048
     Dates: start: 20171216, end: 20180704
  6. PROPRANOLOL HYDROCHLORIDE. [Suspect]
     Active Substance: PROPRANOLOL HYDROCHLORIDE
     Dosage: 1.5 MG/KG TWICE A DAY
     Route: 048
     Dates: start: 20190301
  7. PROPRANOLOL HYDROCHLORIDE. [Suspect]
     Active Substance: PROPRANOLOL HYDROCHLORIDE
     Dosage: 1.5 MG/KG DAILY
     Route: 048
     Dates: start: 20170825, end: 20170910
  8. PROPRANOLOL HYDROCHLORIDE. [Suspect]
     Active Substance: PROPRANOLOL HYDROCHLORIDE
     Dosage: 1.5 MG/KG TWICE A DAY
     Route: 048
     Dates: start: 20170811, end: 20170817

REACTIONS (5)
  - Cardiac murmur [Unknown]
  - Wheezing [Recovered/Resolved]
  - Off label use [Unknown]
  - Drug titration error [Unknown]
  - Pneumonia respiratory syncytial viral [Recovered/Resolved]

NARRATIVE: CASE EVENT DATE: 20170816
